FAERS Safety Report 8052893-7 (Version None)
Quarter: 2012Q1

REPORT INFORMATION
  Report Type: 
  Country: None (occurrence: None)
  Receive Date: 20120118
  Receipt Date: 20120109
  Transmission Date: 20120608
  Serious: Yes (Hospitalization)
  Sender: FDA-Public Use
  Company Number: US-BAYER-2010-002125

PATIENT
  Age: 32 Year
  Sex: Female
  Weight: 63.492 kg

DRUGS (3)
  1. YAZ [Suspect]
     Dosage: UNK
     Dates: start: 20070201, end: 20080701
  2. ALBUTEROL [Concomitant]
     Dosage: UNK UNK, QID
     Route: 055
  3. IMITREX [Concomitant]
     Dosage: 50 MG, UNK
     Route: 048

REACTIONS (3)
  - PELVIC VENOUS THROMBOSIS [None]
  - DEEP VEIN THROMBOSIS [None]
  - THROMBOSIS [None]
